FAERS Safety Report 7277613-5 (Version None)
Quarter: 2011Q1

REPORT INFORMATION
  Report Type: 
  Country: None (occurrence: None)
  Receive Date: 20110207
  Receipt Date: 20110127
  Transmission Date: 20110831
  Serious: Yes (Hospitalization)
  Sender: FDA-Public Use
  Company Number: US-JNJFOC-20110106398

PATIENT
  Sex: Male
  Weight: 30.8 kg

DRUGS (14)
  1. ANTIBIOTICS [Concomitant]
     Indication: CROHN'S DISEASE
  2. AZATHIOPRINE [Concomitant]
  3. REMICADE [Suspect]
     Route: 042
  4. ZINC SULFATE [Concomitant]
  5. FLAGYL [Concomitant]
  6. FOLATE [Concomitant]
  7. MULTI-VITAMINS [Concomitant]
  8. REMICADE [Suspect]
     Indication: CROHN'S DISEASE
     Route: 042
  9. SULFASALAZINE [Concomitant]
  10. OMEPRAZOLE [Concomitant]
  11. PREDNISOLONE [Concomitant]
  12. IRON [Concomitant]
  13. IMURAN [Suspect]
     Indication: CROHN'S DISEASE
  14. PROBIOTICS [Concomitant]

REACTIONS (6)
  - HERPES ZOSTER [None]
  - DIARRHOEA [None]
  - FUNGAL SKIN INFECTION [None]
  - UPPER RESPIRATORY TRACT INFECTION [None]
  - OCULAR HYPERAEMIA [None]
  - VOMITING [None]
